FAERS Safety Report 5010638-9 (Version None)
Quarter: 2006Q2

REPORT INFORMATION
  Report Type: 
  Country: None (occurrence: None)
  Receive Date: 20060525
  Receipt Date: 20060519
  Transmission Date: 20061013
  Serious: Yes (Hospitalization)
  Sender: FDA-Public Use
  Company Number: US-BRISTOL-MYERS SQUIBB COMPANY-13383930

PATIENT
  Age: 83 Year
  Sex: Male

DRUGS (9)
  1. GLUCOPHAGE [Suspect]
     Indication: DIABETES MELLITUS
     Dates: end: 20060511
  2. NORVASC [Concomitant]
  3. FUROSEMIDE [Concomitant]
  4. ATENOLOL [Concomitant]
  5. DIOVAN [Concomitant]
  6. FOLIC ACID [Concomitant]
  7. LISINOPRIL [Concomitant]
  8. ZOCOR [Concomitant]
  9. GLYBURIDE [Concomitant]

REACTIONS (2)
  - CARDIAC FAILURE CONGESTIVE [None]
  - MYOCARDIAL INFARCTION [None]
